FAERS Safety Report 8363058-3 (Version None)
Quarter: 2012Q2

REPORT INFORMATION
  Report Type: 
  Country: None (occurrence: None)
  Receive Date: 20120514
  Receipt Date: 20120514
  Transmission Date: 20120825
  Serious: Yes (Other)
  Sender: FDA-Public Use
  Company Number: None

PATIENT
  Age: 40 Year
  Sex: Female
  Weight: 52.1637 kg

DRUGS (1)
  1. VIIBRYD [Suspect]
     Dates: start: 20120429, end: 20120505

REACTIONS (4)
  - IMPAIRED WORK ABILITY [None]
  - COGNITIVE DISORDER [None]
  - OEDEMA PERIPHERAL [None]
  - EMOTIONAL DISORDER [None]
